FAERS Safety Report 8877323 (Version 2)
Quarter: 2013Q2

REPORT INFORMATION
  Report Type: Spontaneous
  Country: US (occurrence: None)
  Receive Date: 20120426
  Receipt Date: 20120703
  Transmission Date: 20140414
  Serious: Yes (Other)
  Sender: FDA-Public Use
  Company Number: PHEH2012US002400

PATIENT
  Age: 61 Year
  Sex: Female
  Weight: 68 kg

DRUGS (6)
  1. GILENYA [Suspect]
     Indication: MULTIPLE SCLEROSIS
     Route: 048
     Dates: start: 20110505
  2. OXYBUTYNIN (OXYBUTYNIN) [Concomitant]
  3. AMBIEN (ZOLPIDEM TARTRATE) [Concomitant]
  4. ERGOCALCIFEROL (ERGOCALCIFEROL) [Concomitant]
  5. SUMATRIPTAN (SUMATRIPTAN) [Concomitant]
  6. PREGABALIN (PREGABALIN) [Concomitant]

REACTIONS (9)
  - Rash vesicular [None]
  - Lymphocyte count decreased [None]
  - Eye pain [None]
  - Headache [None]
  - Herpes zoster [None]
  - Fatigue [None]
  - Neutrophil count increased [None]
  - Dysaesthesia [None]
  - Post herpetic neuralgia [None]
